FAERS Safety Report 8187294-4 (Version None)
Quarter: 2012Q1

REPORT INFORMATION
  Report Type: 
  Country: None (occurrence: None)
  Receive Date: 20120302
  Receipt Date: 20120221
  Transmission Date: 20120608
  Serious: Yes (Other)
  Sender: FDA-Public Use
  Company Number: 2012SP009565

PATIENT
  Age: 82 Year
  Sex: Male

DRUGS (5)
  1. PRILOSEC [Concomitant]
  2. DESLORATADINE [Suspect]
     Indication: PRODUCT USED FOR UNKNOWN INDICATION
     Dosage: 5 MG; QD; PO
     Route: 048
  3. MAVIK [Concomitant]
  4. NASONEX [Concomitant]
  5. MPRVASC [Concomitant]

REACTIONS (2)
  - DIZZINESS [None]
  - PRESYNCOPE [None]
